FAERS Safety Report 5584404-X (Version None)
Quarter: 2008Q1

REPORT INFORMATION
  Report Type: 
  Country: None (occurrence: None)
  Receive Date: 20080108
  Receipt Date: 20071226
  Transmission Date: 20080703
  Serious: No
  Sender: FDA-Public Use
  Company Number: JP-MERCK-0712USA04431

PATIENT
  Age: 56 Year
  Sex: Male
  Weight: 78 kg

DRUGS (4)
  1. PRIMAXIN [Suspect]
     Indication: PANCREATITIS
     Route: 042
     Dates: start: 20071122, end: 20071126
  2. REMINARON [Suspect]
     Indication: PANCREATITIS ACUTE
     Route: 042
     Dates: start: 20071122, end: 20071126
  3. VITAMEDIN [Concomitant]
     Route: 065
  4. ZANTAC [Concomitant]
     Route: 065

REACTIONS (2)
  - ERYTHEMA [None]
  - OEDEMA PERIPHERAL [None]
